FAERS Safety Report 4667046-X (Version None)
Quarter: 2005Q2

REPORT INFORMATION
  Report Type: 
  Country: None (occurrence: None)
  Receive Date: 20050520
  Receipt Date: 20041018
  Transmission Date: 20051028
  Serious: Yes (Hospitalization)
  Sender: FDA-Public Use
  Company Number: PHEH2004US11278

PATIENT
  Age: 76 Year
  Sex: Female

DRUGS (3)
  1. ZOMETA [Suspect]
     Indication: MULTIPLE MYELOMA
     Dosage: UNK MONTHLY
     Route: 042
  2. THALIDOMIDE [Concomitant]
  3. AREDIA [Suspect]
     Indication: MULTIPLE MYELOMA
     Dosage: UNK MONTHLY
     Route: 042
     Dates: start: 19970101

REACTIONS (2)
  - OSTEONECROSIS [None]
  - WOUND DRAINAGE [None]
